FAERS Safety Report 9870765 (Version 1)
Quarter: 2014Q1

REPORT INFORMATION
  Report Type: Spontaneous
  Country: US (occurrence: US)
  Receive Date: 20140205
  Receipt Date: 20140205
  Transmission Date: 20141002
  Serious: No
  Sender: FDA-Public Use
  Company Number: US-PFIZER INC-2014032834

PATIENT
  Age: 56 Year
  Sex: Female
  Weight: 50.8 kg

DRUGS (1)
  1. PREMARIN [Suspect]
     Dosage: 0.625 MG, 1X/DAY
     Route: 048

REACTIONS (1)
  - Malaise [Unknown]
